FAERS Safety Report 7982263-9 (Version None)
Quarter: 2011Q4

REPORT INFORMATION
  Report Type: 
  Country: None (occurrence: None)
  Receive Date: 20111215
  Receipt Date: 20111215
  Transmission Date: 20120403
  Serious: Yes (Life-Threatening)
  Sender: FDA-Public Use
  Company Number: None

PATIENT
  Age: 53 Year
  Sex: Female
  Weight: 87 kg

DRUGS (1)
  1. GAMMAGARD LIQUID [Suspect]
     Indication: PRIMARY IMMUNODEFICIENCY SYNDROME
     Dosage: 20 GRAM
     Route: 042
     Dates: start: 20111111, end: 20111209

REACTIONS (4)
  - CHEST PAIN [None]
  - INFUSION RELATED REACTION [None]
  - UNEVALUABLE EVENT [None]
  - PHARYNGEAL OEDEMA [None]
